FAERS Safety Report 6525278-X (Version None)
Quarter: 2010Q1

REPORT INFORMATION
  Report Type: 
  Country: None (occurrence: None)
  Receive Date: 20100104
  Receipt Date: 20091222
  Transmission Date: 20100710
  Serious: Yes (Other)
  Sender: FDA-Public Use
  Company Number: JP-PFIZER INC-2009314759

PATIENT
  Age: 78 Year
  Sex: Female

DRUGS (1)
  1. CELECOX [Suspect]
     Indication: RHEUMATOID ARTHRITIS
     Dosage: 200 MG, UNKNOWN/D
     Route: 048
     Dates: start: 20091218, end: 20091221

REACTIONS (3)
  - EYELID OEDEMA [None]
  - OEDEMA MOUTH [None]
  - RASH GENERALISED [None]
